FAERS Safety Report 14535194 (Version 1)
Quarter: 2018Q1

REPORT INFORMATION
  Report Type: Spontaneous
  Country: US (occurrence: US)
  Receive Date: 20180215
  Receipt Date: 20180215
  Transmission Date: 20180509
  Serious: Yes (Other)
  Sender: FDA-Public Use
  Company Number: US-OTSUKA-2018_003712

PATIENT
  Sex: Male

DRUGS (1)
  1. SAMSCA [Suspect]
     Active Substance: TOLVAPTAN
     Indication: BLOOD SODIUM DECREASED
     Dosage: 15 MG, QD
     Route: 048

REACTIONS (3)
  - Anxiety [Unknown]
  - Product use issue [Unknown]
  - Fall [Unknown]
